FAERS Safety Report 12093136 (Version 1)
Quarter: 2016Q1

REPORT INFORMATION
  Report Type: Spontaneous
  Country: US (occurrence: None)
  Receive Date: 20160218
  Receipt Date: 20160218
  Transmission Date: 20160526
  Serious: Yes (Hospitalization)
  Sender: FDA-Public Use
  Company Number: None

PATIENT
  Age: 69 Year
  Sex: Female
  Weight: 77.3 kg

DRUGS (3)
  1. LENALIDOMIDE (CC-5013) [Suspect]
     Active Substance: LENALIDOMIDE
     Dates: end: 20160131
  2. DEXAMETHASONE. [Suspect]
     Active Substance: DEXAMETHASONE
     Dates: end: 20160126
  3. VELCADE [Suspect]
     Active Substance: BORTEZOMIB
     Dates: end: 20160129

REACTIONS (5)
  - Vertigo [None]
  - Cough [None]
  - Asthenia [None]
  - Respiratory tract congestion [None]
  - Nausea [None]

NARRATIVE: CASE EVENT DATE: 20160202
